FAERS Safety Report 21059428 (Version 1)
Quarter: 2022Q3

REPORT INFORMATION
  Report Type: Spontaneous
  Country: US (occurrence: US)
  Receive Date: 20220708
  Receipt Date: 20220708
  Transmission Date: 20221027
  Serious: No
  Sender: FDA-Public Use
  Company Number: US-PFIZER INC-202200737488

PATIENT
  Age: 50 Year
  Sex: Female

DRUGS (1)
  1. CAMPTOSAR [Suspect]
     Active Substance: IRINOTECAN HYDROCHLORIDE
     Dosage: 220 MG (IVPD Q 2 WEEKS)
     Route: 042

REACTIONS (1)
  - Weight decreased [Unknown]
